FAERS Safety Report 25552512 (Version 1)
Quarter: 2025Q3

REPORT INFORMATION
  Report Type: Spontaneous
  Country: JP (occurrence: JP)
  Receive Date: 20250715
  Receipt Date: 20250715
  Transmission Date: 20251021
  Serious: Yes (Hospitalization, Other)
  Sender: AMNEAL
  Company Number: JP-AMNEAL PHARMACEUTICALS-2025-AMRX-02584

PATIENT
  Age: 72 Year
  Sex: Male

DRUGS (3)
  1. PEMETREXED [Suspect]
     Active Substance: PEMETREXED
     Indication: Lung adenocarcinoma stage IV
     Dosage: UNK, EVERY 3 WEEKS
     Route: 065
  2. PEMBROLIZUMAB [Suspect]
     Active Substance: PEMBROLIZUMAB
     Indication: Lung adenocarcinoma stage IV
     Dosage: UNK, EVERY 3 WEEKS
     Route: 065
  3. CARBOPLATIN [Suspect]
     Active Substance: CARBOPLATIN
     Indication: Lung adenocarcinoma stage IV
     Dosage: UNK, EVERY 3 WEEKS
     Route: 065

REACTIONS (6)
  - Hyperthyroidism [Recovered/Resolved]
  - Liver injury [Unknown]
  - Hypothyroidism [Recovered/Resolved]
  - Pneumonitis [Unknown]
  - Erythema [Recovering/Resolving]
  - Thyroid atrophy [Recovered/Resolved]
